FAERS Safety Report 4397041-X (Version None)
Quarter: 2004Q3

REPORT INFORMATION
  Report Type: 
  Country: None (occurrence: None)
  Receive Date: 20040708
  Receipt Date: 20040623
  Transmission Date: 20050211
  Serious: Yes (Hospitalization, Disabling)
  Sender: FDA-Public Use
  Company Number: FABR-10189

PATIENT
  Age: 49 Year
  Sex: Male
  Weight: 79 kg

DRUGS (9)
  1. FABRAZYME [Suspect]
     Indication: FABRY'S DISEASE
     Dates: start: 20021202, end: 20030415
  2. NEXIUM [Concomitant]
  3. ISOPTIN TAB [Concomitant]
  4. FLEXINASE [Concomitant]
  5. PULMICORT [Concomitant]
  6. CLARITIN [Concomitant]
  7. TORSEMIDE [Concomitant]
  8. CONCOR [Concomitant]
  9. AZATHIOPRINE [Concomitant]

REACTIONS (13)
  - ACUTE RESPIRATORY DISTRESS SYNDROME [None]
  - ALVEOLITIS ALLERGIC [None]
  - COUGH [None]
  - DRUG HYPERSENSITIVITY [None]
  - GENERAL PHYSICAL HEALTH DETERIORATION [None]
  - HAEMOPTYSIS [None]
  - LOWER RESPIRATORY TRACT INFECTION [None]
  - LUNG INFILTRATION [None]
  - PNEUMONITIS [None]
  - PULMONARY EOSINOPHILIA [None]
  - PULMONARY FIBROSIS [None]
  - RESPIRATORY TRACT INFECTION [None]
  - TACHYCARDIA [None]
